FAERS Safety Report 7554587-0 (Version None)
Quarter: 2011Q2

REPORT INFORMATION
  Report Type: 
  Country: None (occurrence: None)
  Receive Date: 20110617
  Receipt Date: 20110609
  Transmission Date: 20111010
  Serious: Yes (Hospitalization)
  Sender: FDA-Public Use
  Company Number: US-ROCHE-782460

PATIENT
  Age: 77 Year
  Sex: Female
  Weight: 110 kg

DRUGS (16)
  1. BUMEX [Concomitant]
  2. POTASSIUM [Concomitant]
  3. TESSALON [Concomitant]
  4. LOSARTAN POTASSIUM [Concomitant]
  5. GABAPENTIN [Concomitant]
  6. AVASTIN [Suspect]
     Indication: MACULAR DEGENERATION
     Dosage: FREQUENCY REPORTED AS MONTHLY
     Route: 042
  7. TIMOPTIC [Concomitant]
  8. WELCHOL [Concomitant]
  9. SIMVASTATIN [Concomitant]
  10. DOXYCYCLINE [Concomitant]
  11. TRAMADOL HCL [Concomitant]
  12. ASPIRIN [Concomitant]
  13. CYMBALTA [Concomitant]
  14. SOTALOL HCL [Concomitant]
  15. VITAMIN TAB [Concomitant]
  16. TYLENOL-500 [Concomitant]

REACTIONS (2)
  - CHRONIC OBSTRUCTIVE PULMONARY DISEASE [None]
  - ATRIAL FIBRILLATION [None]
